FAERS Safety Report 18803519 (Version 1)
Quarter: 2021Q1

REPORT INFORMATION
  Report Type: Spontaneous
  Country: US (occurrence: US)
  Receive Date: 20210128
  Receipt Date: 20210128
  Transmission Date: 20210419
  Serious: Yes (Hospitalization)
  Sender: FDA-Public Use
  Company Number: US-TEVA-2021-US-1872056

PATIENT
  Age: 83 Year
  Sex: Male

DRUGS (1)
  1. NABUMETONE. [Suspect]
     Active Substance: NABUMETONE
     Indication: GOUT
     Dosage: 1000 MILLIGRAM DAILY; FOR 1 MONTH
     Route: 048

REACTIONS (3)
  - Tubulointerstitial nephritis [Recovering/Resolving]
  - Nephrotic syndrome [Recovering/Resolving]
  - Glomerulonephritis membranous [Recovering/Resolving]
